FAERS Safety Report 23122973 (Version 2)
Quarter: 2023Q4

REPORT INFORMATION
  Report Type: Report from Study
  Country: CA (occurrence: CA)
  Receive Date: 20231030
  Receipt Date: 20231122
  Transmission Date: 20240110
  Serious: Yes (Hospitalization)
  Sender: FDA-Public Use
  Company Number: CA-ABBVIE-5465465

PATIENT
  Sex: Male

DRUGS (2)
  1. SKYRIZI [Suspect]
     Active Substance: RISANKIZUMAB-RZAA
     Indication: Crohn^s disease
     Route: 042
     Dates: start: 20230928, end: 20230928
  2. SKYRIZI [Suspect]
     Active Substance: RISANKIZUMAB-RZAA
     Indication: Crohn^s disease
     Dosage: WEEK 0
     Route: 042
     Dates: start: 20230831, end: 20230831

REACTIONS (4)
  - Gastrointestinal infection [Not Recovered/Not Resolved]
  - Intestinal obstruction [Unknown]
  - Clostridium difficile infection [Unknown]
  - Leukaemia [Unknown]

NARRATIVE: CASE EVENT DATE: 20230101
